FAERS Safety Report 20169204 (Version 1)
Quarter: 2021Q4

REPORT INFORMATION
  Report Type: Spontaneous
  Country: US (occurrence: US)
  Receive Date: 20211210
  Receipt Date: 20211210
  Transmission Date: 20220304
  Serious: No
  Sender: FDA-Public Use
  Company Number: US-SA-SAC20211206000132

PATIENT
  Age: 54 Year
  Sex: Female

DRUGS (32)
  1. DUPIXENT [Suspect]
     Active Substance: DUPILUMAB
     Indication: Asthma
     Dosage: 400 MG, 1X
     Route: 058
     Dates: start: 20211115, end: 20211115
  2. DUPIXENT [Suspect]
     Active Substance: DUPILUMAB
     Dosage: 200 MG, QOW
     Route: 058
     Dates: start: 202111
  3. RIBOFLAVIN [Concomitant]
     Active Substance: RIBOFLAVIN
  4. SIMVASTATIN [Concomitant]
     Active Substance: SIMVASTATIN
  5. PHENYTOIN [Concomitant]
     Active Substance: PHENYTOIN
  6. XTAMPZA ER [Concomitant]
     Active Substance: OXYCODONE
  7. ZINC SULFATE [Concomitant]
     Active Substance: ZINC SULFATE
  8. PANTOPRAZOLE SODIUM [Concomitant]
     Active Substance: PANTOPRAZOLE SODIUM
  9. ONDANSETRON HCL [Concomitant]
     Active Substance: ONDANSETRON HYDROCHLORIDE
  10. NURTEC ODT [Concomitant]
     Active Substance: RIMEGEPANT SULFATE
  11. MUCINEX [Concomitant]
     Active Substance: GUAIFENESIN
  12. MONTELUKAST SODIUM [Concomitant]
     Active Substance: MONTELUKAST SODIUM
  13. LYRICA [Concomitant]
     Active Substance: PREGABALIN
  14. ALBUTEROL\IPRATROPIUM [Concomitant]
     Active Substance: ALBUTEROL\IPRATROPIUM
  15. FDGARD [Concomitant]
     Dosage: 25-20.7
  16. HYDROMORPHONE HCL [Concomitant]
     Active Substance: HYDROMORPHONE HYDROCHLORIDE
  17. FUROSEMIDE [Concomitant]
     Active Substance: FUROSEMIDE
  18. FONDAPARINUX SODIUM [Concomitant]
     Active Substance: FONDAPARINUX SODIUM
  19. FAMOTIDINE [Concomitant]
     Active Substance: FAMOTIDINE
  20. ERGOCALCIFEROL [Concomitant]
     Active Substance: ERGOCALCIFEROL
  21. EPINEPHRINE [Concomitant]
     Active Substance: EPINEPHRINE
  22. EMGALITY [Concomitant]
     Active Substance: GALCANEZUMAB-GNLM
  23. DIPHENHYDRAMINE HYDROCHLORIDE [Concomitant]
     Active Substance: DIPHENHYDRAMINE HYDROCHLORIDE
  24. DIAZEPAM [Concomitant]
     Active Substance: DIAZEPAM
  25. DELSYM [Concomitant]
     Active Substance: DEXTROMETHORPHAN
     Dosage: UNK, QOW
  26. CLOPIDOGREL [Concomitant]
     Active Substance: CLOPIDOGREL BISULFATE
  27. CLARITIN [Concomitant]
     Active Substance: LORATADINE
  28. BENZONATATE [Concomitant]
     Active Substance: BENZONATATE
  29. AMITRIPTYLINE HYDROCHLORIDE [Concomitant]
     Active Substance: AMITRIPTYLINE HYDROCHLORIDE
  30. CHLORPHENIRAMINE MALEATE [Concomitant]
     Active Substance: CHLORPHENIRAMINE MALEATE
  31. TRELEGY ELLIPTA [Concomitant]
     Active Substance: FLUTICASONE FUROATE\UMECLIDINIUM BROMIDE\VILANTEROL TRIFENATATE
     Dosage: 100-62.5
  32. CYANOCOBALAMIN [Concomitant]
     Active Substance: CYANOCOBALAMIN

REACTIONS (3)
  - Cough [Recovering/Resolving]
  - Human rhinovirus test positive [Recovering/Resolving]
  - Nasopharyngitis [Recovering/Resolving]

NARRATIVE: CASE EVENT DATE: 20210101
